FAERS Safety Report 6159943-3 (Version None)
Quarter: 2009Q2

REPORT INFORMATION
  Report Type: 
  Country: None (occurrence: None)
  Receive Date: 20090415
  Receipt Date: 20090331
  Transmission Date: 20091009
  Serious: Yes (Disabling)
  Sender: FDA-Public Use
  Company Number: 2009BI010672

PATIENT

DRUGS (13)
  1. ZEVALIN [Suspect]
     Indication: LYMPHOMA
     Dosage: 1039 MBQ; 1X; IV
     Route: 042
     Dates: start: 20081007, end: 20081014
  2. RITUXIMAB (CON.) [Concomitant]
  3. ANTIPYRETICS ANALGESICS [Concomitant]
  4. AGENTS (CON.) [Concomitant]
  5. ANTIHISTAMINES (CON.) [Concomitant]
  6. BAKTAR (CON.) [Concomitant]
  7. RITUXIMAB (PREV.) [Concomitant]
  8. CYCLOPHOSPHAMIDE (PREV.0 [Concomitant]
  9. DOXORUBICIN (PREV.) [Concomitant]
  10. VINCRISTINE (PREV.) [Concomitant]
  11. PREDNISOLONE (PREV.) [Concomitant]
  12. FLUDARA (PREV.) [Concomitant]
  13. PLATELET TRANSFUSION (PREV.) [Concomitant]

REACTIONS (3)
  - CELLULITIS [None]
  - NEUTROPHIL COUNT DECREASED [None]
  - UPPER RESPIRATORY TRACT INFLAMMATION [None]
